FAERS Safety Report 24722994 (Version 1)
Quarter: 2024Q4

REPORT INFORMATION
  Report Type: Spontaneous
  Country: FR (occurrence: FR)
  Receive Date: 20241211
  Receipt Date: 20241211
  Transmission Date: 20250115
  Serious: Yes (Life-Threatening)
  Sender: TEVA
  Company Number: None

PATIENT
  Age: 55 Year
  Sex: Female

DRUGS (11)
  1. CLOZAPINE [Suspect]
     Active Substance: CLOZAPINE
     Indication: Schizophrenia
     Route: 048
     Dates: start: 20240326, end: 20240604
  2. CHLORPROMAZINE [Concomitant]
     Active Substance: CHLORPROMAZINE
     Indication: Schizophrenia
     Route: 048
     Dates: start: 20240606, end: 20240606
  3. CHLORPROMAZINE [Concomitant]
     Active Substance: CHLORPROMAZINE
     Indication: Schizophrenia
     Route: 048
     Dates: start: 20240607, end: 20240701
  4. CHLORPROMAZINE [Concomitant]
     Active Substance: CHLORPROMAZINE
     Indication: Schizophrenia
     Route: 048
     Dates: start: 2024, end: 20240601
  5. CHLORPROMAZINE [Concomitant]
     Active Substance: CHLORPROMAZINE
     Indication: Schizophrenia
     Route: 048
     Dates: start: 20240605, end: 20240605
  6. ZYPREXA [Concomitant]
     Active Substance: OLANZAPINE
     Indication: Schizophrenia
     Route: 048
     Dates: start: 20240704
  7. ZYPREXA [Concomitant]
     Active Substance: OLANZAPINE
     Indication: Schizophrenia
     Route: 048
     Dates: start: 20240611, end: 20240614
  8. ABILIFY [Concomitant]
     Active Substance: ARIPIPRAZOLE
     Indication: Schizophrenia
     Route: 048
     Dates: start: 20240508, end: 202406
  9. LOXAPINE [Concomitant]
     Active Substance: LOXAPINE
     Indication: Schizophrenia
     Route: 048
     Dates: start: 20240606, end: 20240614
  10. LOXAPINE [Concomitant]
     Active Substance: LOXAPINE
     Indication: Schizophrenia
     Route: 048
     Dates: start: 2024, end: 20240601
  11. LOXAPINE [Concomitant]
     Active Substance: LOXAPINE
     Indication: Schizophrenia
     Route: 048
     Dates: start: 20240605, end: 20240605

REACTIONS (1)
  - Agranulocytosis [Recovered/Resolved]

NARRATIVE: CASE EVENT DATE: 20240605
